FAERS Safety Report 10502437 (Version 1)
Quarter: 2014Q3

REPORT INFORMATION
  Report Type: Spontaneous
  Country: US (occurrence: None)
  Receive Date: 20140912
  Receipt Date: 20140912
  Transmission Date: 20150326
  Serious: Yes (Other)
  Sender: FDA-Public Use
  Company Number: 2014AP003712

PATIENT
  Sex: Female

DRUGS (1)
  1. MONTELUKAST SODIUM (MONTELUKAST) TABLET [Suspect]
     Active Substance: MONTELUKAST SODIUM

REACTIONS (1)
  - Hypersensitivity [None]
